FAERS Safety Report 8607017 (Version 2)
Quarter: 2013Q2

REPORT INFORMATION
  Report Type: Spontaneous
  Country: US (occurrence: US)
  Receive Date: 20120611
  Receipt Date: 20130617
  Transmission Date: 20140414
  Serious: Yes (Hospitalization, Other)
  Sender: FDA-Public Use
  Company Number: US-ASTRAZENECA-2012SE34461

PATIENT
  Age: 51 Year
  Sex: Female

DRUGS (19)
  1. NEXIUM [Suspect]
     Indication: GASTROOESOPHAGEAL REFLUX DISEASE
     Route: 048
     Dates: start: 2008
  2. NEXIUM [Suspect]
     Indication: PROPHYLAXIS AGAINST GASTROINTESTINAL ULCER
     Route: 048
     Dates: start: 2008
  3. NEXIUM [Suspect]
     Indication: GASTROOESOPHAGEAL REFLUX DISEASE
     Route: 048
     Dates: start: 20081217, end: 20090831
  4. NEXIUM [Suspect]
     Indication: PROPHYLAXIS AGAINST GASTROINTESTINAL ULCER
     Route: 048
     Dates: start: 20081217, end: 20090831
  5. NEXIUM [Suspect]
     Indication: GASTROOESOPHAGEAL REFLUX DISEASE
     Route: 048
     Dates: start: 20090831
  6. NEXIUM [Suspect]
     Indication: PROPHYLAXIS AGAINST GASTROINTESTINAL ULCER
     Route: 048
     Dates: start: 20090831
  7. PEPCID [Concomitant]
     Indication: GASTROOESOPHAGEAL REFLUX DISEASE
  8. TUMS [Concomitant]
  9. ALKA SELTZER [Concomitant]
  10. PEPTOP-BISMOL [Concomitant]
  11. MYLANTA [Concomitant]
  12. TOPROL XL [Concomitant]
     Dates: start: 20090721
  13. TOPROL XL [Concomitant]
  14. ASPIRIN [Concomitant]
     Dates: start: 20090728
  15. LIPITOR [Concomitant]
     Dates: start: 20090717
  16. HYDRALAZINE [Concomitant]
  17. SULAR [Concomitant]
     Dates: start: 20090728
  18. SINGULAIR [Concomitant]
     Dates: start: 20111213
  19. LASIX [Concomitant]
     Dates: start: 20101030

REACTIONS (11)
  - Myocardial infarction [Unknown]
  - Cerebrovascular accident [Unknown]
  - Convulsion [Unknown]
  - Pain in extremity [Unknown]
  - Chronic obstructive pulmonary disease [Unknown]
  - Dyspnoea [Unknown]
  - Osteoporosis [Unknown]
  - Foot fracture [Unknown]
  - Arthritis [Unknown]
  - Pain in jaw [Unknown]
  - Rheumatoid arthritis [Unknown]
